FAERS Safety Report 7016815-X (Version None)
Quarter: 2010Q3

REPORT INFORMATION
  Report Type: 
  Country: None (occurrence: None)
  Receive Date: 20100927
  Receipt Date: 20100917
  Transmission Date: 20110219
  Serious: Yes (Hospitalization)
  Sender: FDA-Public Use
  Company Number: PHHY2010GR62066

PATIENT

DRUGS (2)
  1. GLEEVEC [Suspect]
     Dosage: UNK
  2. TASIGNA [Suspect]

REACTIONS (1)
  - LUNG DISORDER [None]
